FAERS Safety Report 7579813-3 (Version None)
Quarter: 2011Q2

REPORT INFORMATION
  Report Type: 
  Country: None (occurrence: None)
  Receive Date: 20110629
  Receipt Date: 20100603
  Transmission Date: 20111010
  Serious: No
  Sender: FDA-Public Use
  Company Number: A0864174A

PATIENT
  Age: 37 Year
  Sex: Male
  Weight: 63.6 kg

DRUGS (3)
  1. CHANTIX [Suspect]
     Dosage: .5MG PER DAY
     Route: 048
     Dates: start: 20100402
  2. CLARITIN-D 24 HOUR [Concomitant]
     Dates: start: 20100301
  3. ZYBAN [Suspect]
     Route: 065

REACTIONS (4)
  - INSOMNIA [None]
  - ILL-DEFINED DISORDER [None]
  - AGITATION [None]
  - ABNORMAL DREAMS [None]
